FAERS Safety Report 12582272 (Version 1)
Quarter: 2016Q3

REPORT INFORMATION
  Report Type: Spontaneous
  Country: US (occurrence: None)
  Receive Date: 20160721
  Receipt Date: 20160721
  Transmission Date: 20161109
  Serious: Yes (Death)
  Sender: FDA-Public Use
  Company Number: None

PATIENT
  Age: 55 Year
  Sex: Male
  Weight: 45.36 kg

DRUGS (1)
  1. AVASTIN [Suspect]
     Active Substance: BEVACIZUMAB
     Indication: COLON CANCER
     Dosage: INTO A VEIN
     Dates: start: 20140512, end: 20140630

REACTIONS (4)
  - Weight decreased [None]
  - Osteonecrosis of jaw [None]
  - Gastrointestinal perforation [None]
  - Abscess [None]

NARRATIVE: CASE EVENT DATE: 20140512
